FAERS Safety Report 9631326 (Version 2)
Quarter: 2015Q2

REPORT INFORMATION
  Report Type: Report from Study
  Country: CA (occurrence: CA)
  Receive Date: 20131018
  Receipt Date: 20150514
  Transmission Date: 20150821
  Serious: Yes (Death, Other)
  Sender: FDA-Public Use
  Company Number: PHHY2013CA116551

PATIENT
  Age: 80 Year
  Sex: Male

DRUGS (1)
  1. SANDOSTATIN LAR DEPOT [Suspect]
     Active Substance: OCTREOTIDE ACETATE
     Indication: ANGIODYSPLASIA
     Dosage: 20 MG, QMO (ONCE A MONTH)
     Route: 030
     Dates: start: 20120409, end: 20141120

REACTIONS (6)
  - Herpes zoster [Unknown]
  - Blister [Unknown]
  - Burning sensation [Unknown]
  - Off label use [Unknown]
  - Death [Fatal]
  - Pain [Unknown]

NARRATIVE: CASE EVENT DATE: 20131011
